FAERS Safety Report 12221565 (Version 1)
Quarter: 2016Q1

REPORT INFORMATION
  Report Type: Spontaneous
  Country: GB (occurrence: GB)
  Receive Date: 20160330
  Receipt Date: 20160330
  Transmission Date: 20160526
  Serious: Yes (Other)
  Sender: FDA-Public Use
  Company Number: GB-NORTHSTAR HEALTHCARE HOLDINGS-GB-2016NSR001386

PATIENT

DRUGS (1)
  1. TRAMADOL HYDROCHLORIDE. [Suspect]
     Active Substance: TRAMADOL HYDROCHLORIDE
     Indication: PAIN
     Dosage: 100 MG, UNK
     Route: 042

REACTIONS (7)
  - Metabolic acidosis [Recovered/Resolved]
  - Agitation [Unknown]
  - Generalised tonic-clonic seizure [Recovered/Resolved]
  - Mydriasis [Unknown]
  - Tearfulness [Unknown]
  - Tachycardia [Unknown]
  - Serotonin syndrome [Unknown]
